APPROVED DRUG PRODUCT: APRESAZIDE
Active Ingredient: HYDRALAZINE HYDROCHLORIDE; HYDROCHLOROTHIAZIDE
Strength: 50MG;50MG
Dosage Form/Route: CAPSULE;ORAL
Application: A084810 | Product #001
Applicant: NOVARTIS PHARMACEUTICALS CORP
Approved: Approved Prior to Jan 1, 1982 | RLD: Yes | RS: No | Type: DISCN